FAERS Safety Report 7202278-8 (Version None)
Quarter: 2010Q4

REPORT INFORMATION
  Report Type: 
  Country: None (occurrence: None)
  Receive Date: 20101215
  Receipt Date: 20101130
  Transmission Date: 20110411
  Serious: Yes (Death)
  Sender: FDA-Public Use
  Company Number: 023014

PATIENT
  Sex: Male
  Weight: 126.8 kg

DRUGS (9)
  1. LACOSAMIDE [Suspect]
     Indication: EPILEPSY
     Dosage: (400 MG BID ORAL)
     Route: 048
     Dates: start: 20090801
  2. LORAZEPAM [Concomitant]
  3. ZONEGRAN [Concomitant]
  4. PHENYTEK /00017401/ [Concomitant]
  5. DILANTIN [Concomitant]
  6. LISINOPRIL AND HYDROCHLOROTHIAZIDE [Concomitant]
  7. PROZAC /00724401/ [Concomitant]
  8. NASONEX [Concomitant]
  9. COMBIVENT [Concomitant]

REACTIONS (3)
  - BRUXISM [None]
  - CATATONIA [None]
  - SUDDEN DEATH [None]
